FAERS Safety Report 7911735-8 (Version None)
Quarter: 2011Q4

REPORT INFORMATION
  Report Type: 
  Country: None (occurrence: None)
  Receive Date: 20111114
  Receipt Date: 20111114
  Transmission Date: 20120403
  Serious: Yes (Other)
  Sender: FDA-Public Use
  Company Number: None

PATIENT
  Age: 82 Year
  Sex: Male
  Weight: 963.88 kg

DRUGS (1)
  1. VANCOMYCIN [Suspect]
     Indication: DRUG THERAPY
     Dosage: 1,000MG
     Route: 042
     Dates: start: 20111004, end: 20111004

REACTIONS (4)
  - INFUSION SITE EXTRAVASATION [None]
  - PHLEBITIS [None]
  - WRONG TECHNIQUE IN DRUG USAGE PROCESS [None]
  - INFUSION SITE HAEMATOMA [None]
